FAERS Safety Report 8584707 (Version 2)
Quarter: 2012Q4

REPORT INFORMATION
  Report Type: Report from Study
  Country: JP (occurrence: JP)
  Receive Date: 20120529
  Receipt Date: 20120905
  Transmission Date: 20130627
  Serious: Yes (Other)
  Sender: FDA-Public Use
  Company Number: JP-CELGENEUS-087-21660-11053180

PATIENT
  Age: 68 Year
  Sex: Female
  Weight: 40 kg

DRUGS (8)
  1. ABRAXANE [Suspect]
     Indication: BREAST CANCER METASTATIC
     Dosage: 300 Milligram
     Route: 041
     Dates: start: 20101214, end: 20101214
  2. ABRAXANE [Suspect]
     Dosage: 300 Milligram
     Route: 041
     Dates: start: 20110106, end: 20110106
  3. ABRAXANE [Suspect]
     Dosage: 300 Milligram
     Route: 041
     Dates: start: 20110127, end: 20110127
  4. ABRAXANE [Suspect]
     Dosage: 300 Milligram
     Route: 041
     Dates: start: 20110217, end: 20110217
  5. ABRAXANE [Suspect]
     Dosage: 300 Milligram
     Route: 041
     Dates: start: 20110512, end: 20110512
  6. ABRAXANE [Suspect]
     Dosage: 300 Milligram
     Route: 041
     Dates: start: 20110606, end: 20110609
  7. ABRAXANE [Suspect]
     Dosage: 300 Milligram
     Route: 041
     Dates: start: 20110818
  8. FEMARA [Concomitant]
     Indication: BREAST CANCER METASTATIC
     Dosage: 2.5 Milligram
     Route: 048
     Dates: start: 20101213

REACTIONS (3)
  - Nail avulsion [Recovered/Resolved]
  - Alopecia [Recovering/Resolving]
  - Arthralgia [Recovering/Resolving]
